FAERS Safety Report 10088348 (Version 1)
Quarter: 2014Q2

REPORT INFORMATION
  Report Type: Spontaneous
  Country: US (occurrence: US)
  Receive Date: 20140421
  Receipt Date: 20140421
  Transmission Date: 20141212
  Serious: No
  Sender: FDA-Public Use
  Company Number: US-BIOGENIDEC-2014BI030775

PATIENT
  Age: 67 Year
  Sex: Female

DRUGS (4)
  1. TECFIDERA [Suspect]
     Indication: MULTIPLE SCLEROSIS
     Route: 048
     Dates: start: 20140121
  2. CLOPIDOGREL BISULFATE [Concomitant]
  3. DETROL LA [Concomitant]
  4. FERROUS SULFATE [Concomitant]

REACTIONS (1)
  - Fall [Recovered/Resolved]
